FAERS Safety Report 4281699-X (Version None)
Quarter: 2004Q1

REPORT INFORMATION
  Report Type: 
  Country: None (occurrence: None)
  Receive Date: 20040120
  Receipt Date: 20030128
  Transmission Date: 20041129
  Serious: Yes (Hospitalization)
  Sender: FDA-Public Use
  Company Number: BDI-004837

PATIENT
  Age: 38 Year
  Sex: Female
  Weight: 91 kg

DRUGS (5)
  1. PROHANCE, BRACO [Suspect]
     Indication: HEADACHE
     Dosage: 15 ML ONCE IV
     Route: 042
     Dates: start: 20030127, end: 20030127
  2. PROHANCE, BRACO [Suspect]
     Indication: NUCLEAR MAGNETIC RESONANCE IMAGING
     Dosage: 15 ML ONCE IV
     Route: 042
     Dates: start: 20030127, end: 20030127
  3. PROHANCE, BRACO [Suspect]
     Indication: VISION BLURRED
     Dosage: 15 ML ONCE IV
     Route: 042
     Dates: start: 20030127, end: 20030127
  4. ATIVAN [Concomitant]
  5. DEMEROL [Concomitant]

REACTIONS (1)
  - ANAPHYLACTIC REACTION [None]
